FAERS Safety Report 6071673-5 (Version None)
Quarter: 2009Q1

REPORT INFORMATION
  Report Type: 
  Country: None (occurrence: None)
  Receive Date: 20090210
  Receipt Date: 20090205
  Transmission Date: 20090719
  Serious: Yes (Other)
  Sender: FDA-Public Use
  Company Number: CH-BRISTOL-MYERS SQUIBB COMPANY-14494868

PATIENT

DRUGS (1)
  1. ATAZANAVIR [Suspect]

REACTIONS (2)
  - LIPOHYPERTROPHY [None]
  - WEIGHT INCREASED [None]
